FAERS Safety Report 9757093 (Version 1)
Quarter: 2013Q4

REPORT INFORMATION
  Report Type: Spontaneous
  Country: US (occurrence: US)
  Receive Date: 20131213
  Receipt Date: 20131213
  Transmission Date: 20140711
  Serious: Yes (Hospitalization)
  Sender: FDA-Public Use
  Company Number: US-GILEAD-2013-0090024

PATIENT
  Sex: Female

DRUGS (7)
  1. LETAIRIS [Suspect]
     Indication: PRODUCT USED FOR UNKNOWN INDICATION
     Dosage: 10 MG, QD
     Route: 048
     Dates: start: 20130926, end: 20131206
  2. SILDENAFIL [Concomitant]
  3. OXYCODONE [Concomitant]
  4. FOLIC ACID [Concomitant]
  5. BUMETANIDE [Concomitant]
  6. OXYCONTIN [Concomitant]
  7. CELEXA                             /00582602/ [Concomitant]

REACTIONS (1)
  - Weight increased [Recovered/Resolved]
